FAERS Safety Report 24032646 (Version 3)
Quarter: 2025Q1

REPORT INFORMATION
  Report Type: Spontaneous
  Country: US (occurrence: US)
  Receive Date: 20240701
  Receipt Date: 20250108
  Transmission Date: 20250408
  Serious: No
  Sender: SANOFI AVENTIS
  Company Number: US-SA-SAC20240626000800

PATIENT
  Age: 80 Year
  Sex: Female

DRUGS (11)
  1. DUPIXENT [Suspect]
     Active Substance: DUPILUMAB
     Indication: Asthma
     Dosage: 300 MG, QOW
     Route: 058
     Dates: start: 20240405
  2. BUDESONIDE [Concomitant]
     Active Substance: BUDESONIDE
  3. ESOMEPRAZOLE [Concomitant]
     Active Substance: ESOMEPRAZOLE
  4. GLIPIZIDE [Concomitant]
     Active Substance: GLIPIZIDE
  5. IPRATROPIUM [Concomitant]
     Active Substance: IPRATROPIUM
  6. LISINOPRIL [Concomitant]
     Active Substance: LISINOPRIL
  7. MONTELUKAST [Concomitant]
     Active Substance: MONTELUKAST
  8. NOVOLOG [Concomitant]
     Active Substance: INSULIN ASPART
  9. PRAMIPEXOLE [Concomitant]
     Active Substance: PRAMIPEXOLE
  10. TOUJEO [Concomitant]
     Active Substance: INSULIN GLARGINE
  11. TRAZODONE HCL [Concomitant]
     Active Substance: TRAZODONE HYDROCHLORIDE

REACTIONS (7)
  - Injection site pain [Unknown]
  - Asthma [Not Recovered/Not Resolved]
  - Dyspnoea [Not Recovered/Not Resolved]
  - Gait disturbance [Not Recovered/Not Resolved]
  - Loss of personal independence in daily activities [Unknown]
  - Product dose omission in error [Unknown]
  - Drug ineffective [Unknown]

NARRATIVE: CASE EVENT DATE: 20240101
